FAERS Safety Report 9179283 (Version 1)
Quarter: 2012Q4

REPORT INFORMATION
  Report Type: Report from Study
  Country: US (occurrence: US)
  Receive Date: 20121029
  Receipt Date: 20121029
  Transmission Date: 20130627
  Serious: Yes (Death, Hospitalization)
  Sender: FDA-Public Use
  Company Number: US-ASTELLAS-2012US010465

PATIENT
  Age: 65 Year
  Sex: Female
  Weight: 52 kg

DRUGS (16)
  1. ERLOTINIB TABLET [Suspect]
     Indication: NON-SMALL CELL LUNG CANCER
     Dosage: 150 mg, UID/QD
     Route: 048
     Dates: start: 20120828, end: 20121015
  2. MK2206 [Suspect]
     Indication: NON-SMALL CELL LUNG CANCER
     Dosage: 135 mg, Weekly
     Route: 048
     Dates: start: 20120828, end: 20121009
  3. ASPIRIN [Concomitant]
     Indication: CARDIAC DISORDER
     Dosage: 81 mg, UID/QD
     Route: 048
     Dates: start: 2006
  4. CALCIUM + VITAMIN D                /01483701/ [Concomitant]
     Indication: OSTEOPOROSIS
     Dosage: 1 DF, UID/QD
     Route: 048
  5. IMODIUM [Concomitant]
     Dosage: UNK, 1-2 DF
     Route: 048
     Dates: start: 20120920
  6. ATROVENT [Concomitant]
     Indication: DYSPNOEA
     Dosage: 0.02 %, bid
     Dates: start: 20120320
  7. XOPENEX [Concomitant]
     Indication: RESPIRATORY DEPRESSION
     Dosage: 1.25 mg, bid
     Dates: start: 20120320
  8. MIRTAZAPINE [Concomitant]
     Indication: DECREASED APPETITE
     Dosage: 30 mg, QHS
     Route: 048
  9. MIRTAZAPINE [Concomitant]
     Indication: SLEEP DISORDER
  10. MOTRIN [Concomitant]
     Indication: PRODUCT USED FOR UNKNOWN INDICATION
     Dosage: 200 mg, QHS
     Route: 048
  11. MUCINEX [Concomitant]
     Indication: PRODUCT USED FOR UNKNOWN INDICATION
     Dosage: UNK
     Route: 048
  12. SPIRIVA [Concomitant]
     Indication: HYPERSENSITIVITY
     Dosage: 8 mg, Q8 hours, prn
     Route: 048
     Dates: start: 2003
  13. NASACORT [Concomitant]
     Indication: HYPERSENSITIVITY
     Dosage: 55 ug, UID/QD
     Route: 045
     Dates: start: 20120320
  14. TYLENOL /00020001/ [Concomitant]
     Indication: PRODUCT USED FOR UNKNOWN INDICATION
     Dosage: 325 mg, QHS
     Route: 048
  15. VITAMIN B [Concomitant]
     Indication: SUPPLEMENTATION THERAPY
     Dosage: 50 mg, UID/QD
     Route: 048
     Dates: start: 1981
  16. VITAMIN C                          /00008001/ [Concomitant]
     Indication: SUPPLEMENTATION THERAPY
     Dosage: 1000 mg, UID/QD
     Route: 048
     Dates: start: 1981

REACTIONS (12)
  - Respiratory failure [Fatal]
  - Pneumonia [Unknown]
  - Malignant neoplasm progression [Unknown]
  - Dehydration [Unknown]
  - Anaemia [Unknown]
  - Haemoptysis [Unknown]
  - Nausea [Recovering/Resolving]
  - Vomiting [Recovering/Resolving]
  - Rash pruritic [Unknown]
  - Dermatitis acneiform [Unknown]
  - Constipation [Unknown]
  - Oedema peripheral [Unknown]
